FAERS Safety Report 19293096 (Version 1)
Quarter: 2021Q2

REPORT INFORMATION
  Report Type: Spontaneous
  Country: US (occurrence: US)
  Receive Date: 20210522
  Receipt Date: 20210522
  Transmission Date: 20210717
  Serious: No
  Sender: FDA-Public Use
  Company Number: None

PATIENT
  Age: 71 Year
  Sex: Female
  Weight: 64.8 kg

DRUGS (1)
  1. PROLIA [Suspect]
     Active Substance: DENOSUMAB
     Dates: start: 20191210

REACTIONS (4)
  - Headache [None]
  - Arthralgia [None]
  - Feeling abnormal [None]
  - Myalgia [None]

NARRATIVE: CASE EVENT DATE: 20210422
